FAERS Safety Report 6129707-5 (Version None)
Quarter: 2009Q1

REPORT INFORMATION
  Report Type: 
  Country: None (occurrence: None)
  Receive Date: 20090324
  Receipt Date: 20090316
  Transmission Date: 20090719
  Serious: Yes (Hospitalization, Other)
  Sender: FDA-Public Use
  Company Number: NZ-AVENTIS-200821795GDDC

PATIENT
  Age: 70 Year
  Sex: Female

DRUGS (19)
  1. ARAVA [Suspect]
     Indication: RHEUMATOID ARTHRITIS
     Route: 048
     Dates: start: 20080624
  2. OMEPRAZOLE [Suspect]
     Route: 048
  3. BENDROFLUMETHIAZIDE [Concomitant]
     Route: 048
  4. BETALOC [Concomitant]
     Indication: HYPERTENSION
     Route: 048
  5. MULTI-VITAMINS [Concomitant]
     Route: 048
  6. SLOW-K [Concomitant]
     Route: 048
  7. PREDNISONE [Concomitant]
     Route: 048
  8. OSTEO-500 [Concomitant]
     Route: 048
  9. FLAX OIL [Concomitant]
     Route: 048
  10. ASPIRIN [Concomitant]
  11. CILAZAPRIL MONOHYDRATE [Concomitant]
  12. VISCOTEARS [Concomitant]
     Route: 047
  13. FOSAMAX [Concomitant]
  14. PREDNISONE [Concomitant]
     Dosage: DOSE: AS DIRECTED
  15. LACRI-LUBE [Concomitant]
     Dosage: DOSE: UNK
  16. SLOW-K [Concomitant]
     Dosage: DOSE: 2 TABLETS
     Dates: end: 20081223
  17. SLOW-K [Concomitant]
     Dosage: DOSE: 2 TABLETS
     Dates: start: 20081224, end: 20090218
  18. SLOW-K [Concomitant]
     Dosage: DOSE: 1 TABLET
     Dates: start: 20090219
  19. PARACETAMOL [Concomitant]
     Dosage: DOSE: 2 TABLETS

REACTIONS (1)
  - CHOLECYSTITIS [None]
